FAERS Safety Report 10039882 (Version 2)
Quarter: 2014Q2

REPORT INFORMATION
  Report Type: Report from Study
  Country: US (occurrence: US)
  Receive Date: 20140326
  Receipt Date: 20140520
  Transmission Date: 20141212
  Serious: Yes (Hospitalization)
  Sender: FDA-Public Use
  Company Number: US-JNJFOC-20140310866

PATIENT
  Sex: Female
  Weight: 77.11 kg

DRUGS (4)
  1. SIMPONI [Suspect]
     Indication: RHEUMATOID ARTHRITIS
     Route: 058
     Dates: end: 2013
  2. METHOTREXATE [Concomitant]
     Route: 048
     Dates: start: 1983
  3. PREDNISONE [Concomitant]
     Dosage: STARTED ABOUT 4-5 YEARS AGO
     Route: 048
  4. MELOXICAM [Concomitant]
     Route: 048

REACTIONS (3)
  - Nerve compression [Recovered/Resolved]
  - Arthralgia [Recovered/Resolved]
  - Pain in extremity [Recovered/Resolved]
